FAERS Safety Report 7878797-8 (Version None)
Quarter: 2011Q4

REPORT INFORMATION
  Report Type: 
  Country: None (occurrence: None)
  Receive Date: 20111028
  Receipt Date: 20111019
  Transmission Date: 20120403
  Serious: Yes (Hospitalization)
  Sender: FDA-Public Use
  Company Number: JPI-P-017697

PATIENT
  Age: 44 Year
  Sex: Female

DRUGS (1)
  1. XYREM [Suspect]
     Indication: NARCOLEPSY
     Dosage: 4.5 GM (2.25 GM, 2 IN 1 D), ORAL
     Route: 048
     Dates: start: 20080529, end: 20080101

REACTIONS (7)
  - STRESS AT WORK [None]
  - HYPOTHYROIDISM [None]
  - INSOMNIA [None]
  - THROMBOSIS [None]
  - NARCOLEPSY [None]
  - DRUG DOSE OMISSION [None]
  - CONDITION AGGRAVATED [None]
